FAERS Safety Report 16777613 (Version 1)
Quarter: 2019Q3

REPORT INFORMATION
  Report Type: Spontaneous
  Country: CA (occurrence: CA)
  Receive Date: 20190905
  Receipt Date: 20190905
  Transmission Date: 20191005
  Serious: Yes (Other)
  Sender: FDA-Public Use
  Company Number: CA-TEVA-2019-CA-1094579

PATIENT
  Age: 61 Year
  Sex: Male

DRUGS (6)
  1. FLUOROURACIL INJECTION USP [Concomitant]
     Active Substance: FLUOROURACIL
  2. LEUCOVORIN. [Concomitant]
     Active Substance: LEUCOVORIN
  3. OXALIPLATIN BY HOSPIRA [Concomitant]
  4. OXALIPLATIN. [Suspect]
     Active Substance: OXALIPLATIN
     Route: 065
  5. IRINOTECAN HYDROCHLORIDE. [Concomitant]
     Active Substance: IRINOTECAN HYDROCHLORIDE
  6. IRINOTECAN HYDROCHLORIDE. [Suspect]
     Active Substance: IRINOTECAN HYDROCHLORIDE
     Route: 065

REACTIONS (2)
  - Diarrhoea [Unknown]
  - Neuropathy peripheral [Unknown]
